FAERS Safety Report 8072135-6 (Version None)
Quarter: 2011Q4

REPORT INFORMATION
  Report Type: 
  Country: None (occurrence: None)
  Receive Date: 20111221
  Receipt Date: 20110727
  Transmission Date: 20120403
  Serious: Yes (Other)
  Sender: FDA-Public Use
  Company Number: PHHY2011US68492

PATIENT
  Age: 65 Year
  Sex: Male

DRUGS (2)
  1. EXJADE [Suspect]
     Indication: LYMPHATIC DISORDER
     Dosage: 1500 MG, DAILY, ORAL
     Route: 048
     Dates: start: 20100301
  2. EXJADE [Suspect]
     Indication: BONE MARROW DISORDER
     Dosage: 1500 MG, DAILY, ORAL
     Route: 048
     Dates: start: 20100301

REACTIONS (3)
  - NAUSEA [None]
  - DIZZINESS [None]
  - ANAEMIA [None]
